FAERS Safety Report 19716049 (Version 3)
Quarter: 2021Q3

REPORT INFORMATION
  Report Type: Spontaneous
  Country: DE (occurrence: DE)
  Receive Date: 20210818
  Receipt Date: 20210917
  Transmission Date: 20211014
  Serious: Yes (Hospitalization, Other)
  Sender: FDA-Public Use
  Company Number: DE-JNJFOC-20210819738

PATIENT
  Age: 31 Year
  Sex: Female
  Weight: 51 kg

DRUGS (4)
  1. TILIDIN [Concomitant]
     Active Substance: NALOXONE HYDROCHLORIDE\TILIDINE HYDROCHLORIDE
     Indication: BACK PAIN
     Dosage: 100MG/ 8MG
     Dates: start: 20201221
  2. REKAMBYS [Suspect]
     Active Substance: RILPIVIRINE
     Indication: HIV INFECTION
     Dosage: UNK
     Route: 030
     Dates: start: 20210628, end: 20210726
  3. VOCABRIA [Suspect]
     Active Substance: CABOTEGRAVIR SODIUM
     Indication: HIV INFECTION
     Dosage: UNK
     Route: 030
     Dates: start: 20210628, end: 20210726
  4. IBUPROFEN. [Concomitant]
     Active Substance: IBUPROFEN
     Indication: BACK PAIN
     Route: 065

REACTIONS (12)
  - Blood pressure decreased [Recovered/Resolved]
  - Cardiovascular symptom [Recovered/Resolved]
  - Paraesthesia oral [Recovered/Resolved]
  - Tachycardia [Recovered/Resolved]
  - Pruritus [Recovered/Resolved]
  - Paraesthesia [Recovered/Resolved]
  - Dyspnoea [Recovered/Resolved]
  - Pharyngeal paraesthesia [Recovered/Resolved]
  - Angioedema [Recovered/Resolved]
  - Anaphylactic shock [Recovered/Resolved]
  - Erythema [Recovered/Resolved]
  - Tachypnoea [Recovered/Resolved]

NARRATIVE: CASE EVENT DATE: 20210726
